FAERS Safety Report 4621539-X (Version None)
Quarter: 2005Q1

REPORT INFORMATION
  Report Type: 
  Country: None (occurrence: None)
  Receive Date: 20050328
  Receipt Date: 20031125
  Transmission Date: 20050727
  Serious: No
  Sender: FDA-Public Use
  Company Number: 10063

PATIENT
  Age: 66 Year
  Sex: Male

DRUGS (9)
  1. METHOTREXATE [Suspect]
     Dosage: 0.571 MG/0.857 MG
     Dates: start: 20001005, end: 20010406
  2. METHOTREXATE [Suspect]
     Dosage: 0.571 MG/0.857 MG
     Dates: start: 20030804, end: 20031007
  3. BUCILLAMINE [Concomitant]
  4. ETIZOLAM [Concomitant]
  5. FERROUS CITRATE [Concomitant]
  6. GLIMEPIRIDE [Concomitant]
  7. LANSOPRAZOLE [Concomitant]
  8. PREDNISOLONE [Concomitant]
  9. VOGLIBOSE [Concomitant]

REACTIONS (2)
  - DISSEMINATED INTRAVASCULAR COAGULATION [None]
  - URINARY TRACT INFECTION [None]
